FAERS Safety Report 5042213-4 (Version None)
Quarter: 2006Q2

REPORT INFORMATION
  Report Type: 
  Country: None (occurrence: None)
  Receive Date: 20060601
  Receipt Date: 20060306
  Transmission Date: 20061013
  Serious: No
  Sender: FDA-Public Use
  Company Number: 2006PV009765

PATIENT
  Age: 55 Year
  Sex: Female

DRUGS (8)
  1. BYETTA [Suspect]
     Indication: DIABETES MELLITUS NON-INSULIN-DEPENDENT
     Dosage: 5 MCG;BID;SC
     Route: 058
     Dates: start: 20060223
  2. ACTOS [Concomitant]
  3. ZETIA [Concomitant]
  4. NAISTAN [Concomitant]
  5. COZAAR [Concomitant]
  6. PREMARIN [Concomitant]
  7. ZOCOR [Concomitant]
  8. GLUCOPHAGE [Concomitant]

REACTIONS (4)
  - HEADACHE [None]
  - MUSCLE SPASMS [None]
  - NAUSEA [None]
  - RETCHING [None]
